FAERS Safety Report 9647966 (Version 1)
Quarter: 2013Q4

REPORT INFORMATION
  Report Type: Spontaneous
  Country: US (occurrence: US)
  Receive Date: 20131028
  Receipt Date: 20131028
  Transmission Date: 20140711
  Serious: No
  Sender: FDA-Public Use
  Company Number: US-PFIZER INC-2013304212

PATIENT
  Age: 66 Year
  Sex: Female

DRUGS (9)
  1. XELJANZ [Suspect]
     Indication: RHEUMATOID ARTHRITIS
     Dosage: 5 MG, 2X/DAY
     Route: 048
     Dates: start: 201308, end: 20130918
  2. SIMVASTATIN [Concomitant]
     Dosage: 40 MG, UNK
  3. DIAZEPAM [Concomitant]
     Dosage: 5 MG, UNK
  4. TRAZODONE HYDROCHLORIDE [Concomitant]
     Dosage: 50 MG, UNK
  5. CYCLOBENZAPRINE HYDROCHLORIDE [Concomitant]
     Dosage: 10 MG, UNK
  6. CLOPIDOGREL [Concomitant]
     Dosage: 75 MG, UNK
  7. PREDNISONE [Concomitant]
     Dosage: 5 MG, UNK
  8. OXYCODONE HYDROCHLORIDE W/PARACETAMOL [Concomitant]
     Dosage: UNK (OXYCODONE HCL 10MG-32ACETAMINOPHEN)
  9. HYDROCODONE W/ACETAMINOPHEN [Concomitant]
     Dosage: UNK (10MGHYDROCODONE-65ACETAMINOPHEN)

REACTIONS (3)
  - Nausea [Recovered/Resolved]
  - Vomiting [Recovered/Resolved]
  - Blood urine present [Recovering/Resolving]
